FAERS Safety Report 16306075 (Version 1)
Quarter: 2019Q2

REPORT INFORMATION
  Report Type: Spontaneous
  Country: SG (occurrence: SG)
  Receive Date: 20190513
  Receipt Date: 20190513
  Transmission Date: 20190711
  Serious: Yes (Other)
  Sender: FDA-Public Use
  Company Number: SG-HERITAGE PHARMACEUTICALS-2019HTG00196

PATIENT
  Age: 59 Year
  Sex: Male

DRUGS (3)
  1. SULFASALAZINE. [Suspect]
     Active Substance: SULFASALAZINE
     Dosage: 1.5 G, 1X/DAY
     Route: 065
  2. SULFASALAZINE. [Suspect]
     Active Substance: SULFASALAZINE
     Dosage: 2 G, 1X/DAY
     Route: 065
  3. SULFASALAZINE. [Suspect]
     Active Substance: SULFASALAZINE
     Indication: RHEUMATOID ARTHRITIS
     Dosage: 1 G, 1X/DAY

REACTIONS (4)
  - Alopecia universalis [Not Recovered/Not Resolved]
  - Vitiligo [Not Recovered/Not Resolved]
  - Cytomegalovirus infection [Unknown]
  - Drug reaction with eosinophilia and systemic symptoms [Recovered/Resolved]
